FAERS Safety Report 14094463 (Version 1)
Quarter: 2017Q4

REPORT INFORMATION
  Report Type: Spontaneous
  Country: US (occurrence: US)
  Receive Date: 20171016
  Receipt Date: 20171016
  Transmission Date: 20180321
  Serious: No
  Sender: FDA-Public Use
  Company Number: US-AMGEN-USASP2017038025

PATIENT
  Age: 69 Year
  Sex: Female

DRUGS (4)
  1. PROLIA [Suspect]
     Active Substance: DENOSUMAB
     Indication: OSTEOPOROSIS
     Dosage: 60 MG, UNK
     Route: 065
     Dates: start: 20160517
  2. ZANTAC [Concomitant]
     Active Substance: RANITIDINE HYDROCHLORIDE
     Indication: RASH
  3. FORTEO [Concomitant]
     Active Substance: TERIPARATIDE
  4. RECLAST [Concomitant]
     Active Substance: ZOLEDRONIC ACID

REACTIONS (4)
  - Pain of skin [Unknown]
  - Rash pruritic [Not Recovered/Not Resolved]
  - Skin lesion [Unknown]
  - Feeling hot [Unknown]

NARRATIVE: CASE EVENT DATE: 201606
